FAERS Safety Report 5897392-3 (Version None)
Quarter: 2008Q3

REPORT INFORMATION
  Report Type: 
  Country: None (occurrence: None)
  Receive Date: 20080925
  Receipt Date: 20080915
  Transmission Date: 20090109
  Serious: Yes (Death)
  Sender: FDA-Public Use
  Company Number: US-JNJFOC-20080903729

PATIENT
  Sex: Female
  Weight: 108.86 kg

DRUGS (1)
  1. DURAGESIC-100 [Suspect]
     Indication: BACK PAIN
     Dosage: 100UG/HR+100UG/HR+100UG/HR
     Route: 062

REACTIONS (3)
  - BREAST CANCER [None]
  - CANCER PAIN [None]
  - DIABETES MELLITUS [None]
